FAERS Safety Report 19210241 (Version 2)
Quarter: 2023Q1

REPORT INFORMATION
  Report Type: Spontaneous
  Country: DE (occurrence: DE)
  Receive Date: 20210504
  Receipt Date: 20230125
  Transmission Date: 20230418
  Serious: Yes (Hospitalization)
  Sender: FDA-Public Use
  Company Number: None

PATIENT
  Age: 83 Year
  Sex: Female

DRUGS (10)
  1. AMLODIPINE [Suspect]
     Active Substance: AMLODIPINE BESYLATE
     Indication: Product used for unknown indication
     Dosage: 10 MG, 0.5-0-0.5-0, TABLET
  2. IBUPROFEN [Suspect]
     Active Substance: IBUPROFEN
     Indication: Product used for unknown indication
     Dosage: 600 MG, 1-0-0-0, TABLET
  3. TORSEMIDE [Suspect]
     Active Substance: TORSEMIDE
     Indication: Product used for unknown indication
  4. RAMIPRIL [Suspect]
     Active Substance: RAMIPRIL
     Indication: Product used for unknown indication
     Dosage: 10 MG, 0.5-0-0.5-0, TABLET
  5. PREGABALIN [Concomitant]
     Active Substance: PREGABALIN
     Dosage: 75 MG, 0-2-0-0, CAPSULE
  6. EDOXABAN [Concomitant]
     Active Substance: EDOXABAN
     Dosage: 30 MG, 1-0-0-0, TABLET
  7. ATENOLOL [Concomitant]
     Active Substance: ATENOLOL
     Dosage: 50 MG, 1-0-0-0, TABLET
     Route: 048
  8. LORAZEPAM [Concomitant]
     Active Substance: LORAZEPAM
     Dosage: 1 MG, 1-0-0-0, TABLET
     Route: 048
  9. POTASSIUM CHLORIDE [Concomitant]
     Active Substance: POTASSIUM CHLORIDE
     Dosage: 600 MG, 2-2-2-0, CAPSULE
  10. CITALOPRAM [Concomitant]
     Active Substance: CITALOPRAM HYDROBROMIDE
     Dosage: 10 MG, 1-0-0-0, TABLET

REACTIONS (5)
  - Confusional state [Recovering/Resolving]
  - Disorientation [Recovering/Resolving]
  - Depressed level of consciousness [Recovering/Resolving]
  - Dehydration [Recovering/Resolving]
  - General physical health deterioration [Recovering/Resolving]
